FAERS Safety Report 16888028 (Version 1)
Quarter: 2019Q4

REPORT INFORMATION
  Report Type: Spontaneous
  Country: US (occurrence: US)
  Receive Date: 20191006
  Receipt Date: 20191006
  Transmission Date: 20200122
  Serious: No
  Sender: FDA-Public Use
  Company Number: US-AMGEN-USASP2019160961

PATIENT
  Age: 63 Year
  Sex: Female

DRUGS (8)
  1. CATS CLAW [UNCARIA TOMENTOSA] [Concomitant]
     Dosage: 350 MILLIGRAM
  2. PREDNISONE. [Concomitant]
     Active Substance: PREDNISONE
     Dosage: 5 MILLIGRAM
  3. ARMOUR THYROID [Concomitant]
     Active Substance: THYROID, PORCINE
     Dosage: 60 MILLIGRAM
  4. CURCUMIN [CURCUMA LONGA] [Concomitant]
     Dosage: UNK
  5. GINGER [ZINGIBER OFFICINALE] [Concomitant]
     Active Substance: GINGER
     Dosage: 250 MILLIGRAM
  6. VITAMIN D [COLECALCIFEROL] [Concomitant]
     Active Substance: CHOLECALCIFEROL
     Dosage: UNK
  7. FISH OIL [COD-LIVER OIL] [Concomitant]
     Dosage: UNK
  8. ENBREL [Suspect]
     Active Substance: ETANERCEPT
     Indication: RHEUMATOID ARTHRITIS
     Dosage: 50 MILLIGRAM, QWK
     Route: 058

REACTIONS (1)
  - Injection site bruising [Recovered/Resolved]
